FAERS Safety Report 6465762-0 (Version None)
Quarter: 2009Q4

REPORT INFORMATION
  Report Type: 
  Country: None (occurrence: None)
  Receive Date: 20091201
  Receipt Date: 20091119
  Transmission Date: 20100525
  Serious: Yes (Hospitalization)
  Sender: FDA-Public Use
  Company Number: GB-GILEAD-2008-0015134

PATIENT
  Age: 63 Year
  Sex: Male
  Weight: 47 kg

DRUGS (23)
  1. VIREAD [Suspect]
     Indication: HIV INFECTION
     Route: 048
     Dates: start: 20030101, end: 20070807
  2. ATAZANAVIR [Concomitant]
     Route: 048
  3. RITONAVIR [Concomitant]
     Route: 048
  4. ABACAVIR [Concomitant]
     Route: 048
  5. DIDANOSINE [Concomitant]
  6. NEVIRAPINE [Concomitant]
  7. CITALOPRAM [Concomitant]
     Route: 048
  8. PARACETAMOL [Concomitant]
     Route: 048
  9. THIAMINE [Concomitant]
     Route: 048
  10. ALFACALCIDOL [Concomitant]
     Route: 048
  11. AMILORIDE HYDROCHLORIDE [Concomitant]
     Route: 048
  12. CHLORAMPHENICOL [Concomitant]
     Route: 031
  13. CO-CODAMOL [Concomitant]
  14. CYCLIZINE [Concomitant]
  15. DEXAMETHASONE TAB [Concomitant]
     Indication: DECREASED APPETITE
  16. DEXAMETHASONE TAB [Concomitant]
     Indication: DEPRESSED MOOD
  17. LACRI-LUBE [Concomitant]
  18. LOPERAMIDE [Concomitant]
     Route: 048
  19. PHOSPHATE SANDOZ [Concomitant]
     Route: 048
  20. SANDOCAL [Concomitant]
     Route: 048
  21. SENNA [Concomitant]
  22. SODIUM BICARBONATE IN PLASTIC CONTAINER [Concomitant]
  23. ZOPICLONE [Concomitant]
     Route: 048

REACTIONS (6)
  - AMINOACIDURIA [None]
  - DENTAL CARIES [None]
  - FANCONI SYNDROME ACQUIRED [None]
  - HYPOPHOSPHATAEMIA [None]
  - STAPHYLOCOCCAL INFECTION [None]
  - WEIGHT DECREASED [None]
